FAERS Safety Report 4338863-0 (Version None)
Quarter: 2004Q2

REPORT INFORMATION
  Report Type: 
  Country: None (occurrence: None)
  Receive Date: 20040409
  Receipt Date: 20040326
  Transmission Date: 20050107
  Serious: Yes (Hospitalization)
  Sender: FDA-Public Use
  Company Number: 2004-0006872

PATIENT
  Age: 51 Year
  Sex: Male

DRUGS (5)
  1. VIREAD [Suspect]
     Indication: HIV INFECTION
     Dosage: 300 MG, 1 IN 1 D, ORAL
     Route: 048
     Dates: start: 20030901
  2. EPIVIR [Suspect]
     Dosage: ORAL
     Route: 048
     Dates: start: 20030901
  3. VIRAMUNE [Suspect]
     Dosage: ORAL
     Route: 048
     Dates: start: 20030901
  4. MALOCIDE (PYRIMETHAMINE) [Suspect]
     Dosage: ORAL
     Route: 048
     Dates: start: 20020101
  5. CLINDAMYCIN PHOSPHATE [Suspect]
     Dosage: ORAL
     Route: 048
     Dates: start: 20020101

REACTIONS (7)
  - ANAEMIA MEGALOBLASTIC [None]
  - BLOOD FOLATE ABNORMAL [None]
  - EOSINOPHILIA [None]
  - PANCYTOPENIA [None]
  - PRURIGO [None]
  - RASH MACULO-PAPULAR [None]
  - RASH PAPULOSQUAMOUS [None]
